FAERS Safety Report 6680834-3 (Version None)
Quarter: 2010Q2

REPORT INFORMATION
  Report Type: 
  Country: None (occurrence: None)
  Receive Date: 20100414
  Receipt Date: 20100405
  Transmission Date: 20101027
  Serious: Yes (Death, Life-Threatening)
  Sender: FDA-Public Use
  Company Number: JP-JNJFOC-20090807058

PATIENT
  Sex: Female
  Weight: 41 kg

DRUGS (15)
  1. DOXORUBICIN HCL [Suspect]
     Indication: OVARIAN CANCER RECURRENT
     Dosage: 60 MG
     Route: 042
  2. DECADRON [Concomitant]
     Indication: PROPHYLAXIS
     Route: 042
  3. DECADRON [Concomitant]
     Route: 042
  4. GRANISETRON [Concomitant]
     Indication: PROPHYLAXIS
     Route: 042
  5. GRANISETRON [Concomitant]
     Route: 042
  6. OCTREOTIDE ACETATE [Concomitant]
     Route: 042
  7. OXYCODONE HCL [Concomitant]
     Dosage: AS NEEDED
     Route: 048
  8. OXYCODONE HCL [Concomitant]
     Route: 048
  9. FLUNITRAZEPAM [Concomitant]
     Route: 048
  10. PROCHLORPERAZINE MALEATE [Concomitant]
     Route: 048
  11. BROTIZOLAM [Concomitant]
     Route: 048
  12. METOCLOPRAMIDE HYDROCHLORIDE [Concomitant]
     Route: 042
  13. FAMOTIDINE [Concomitant]
     Route: 042
  14. PYRIDOXAL PHOSPHATE [Concomitant]
     Indication: PROPHYLAXIS
     Route: 048
  15. UREA [Concomitant]
     Indication: PROPHYLAXIS
     Route: 061

REACTIONS (3)
  - DISSEMINATED INTRAVASCULAR COAGULATION [None]
  - OVARIAN CANCER [None]
  - REVERSIBLE POSTERIOR LEUKOENCEPHALOPATHY SYNDROME [None]
